FAERS Safety Report 10242922 (Version 1)
Quarter: 2014Q2

REPORT INFORMATION
  Report Type: Spontaneous
  Country: US (occurrence: US)
  Receive Date: 20140618
  Receipt Date: 20140618
  Transmission Date: 20141212
  Serious: No
  Sender: FDA-Public Use
  Company Number: US-BIOGENIDEC-2014BI056881

PATIENT
  Sex: Female

DRUGS (2)
  1. TYSABRI [Suspect]
     Indication: MULTIPLE SCLEROSIS
     Route: 042
     Dates: start: 20130329, end: 20140311
  2. AVONEX [Concomitant]
     Indication: MULTIPLE SCLEROSIS
     Route: 030

REACTIONS (16)
  - Pain in extremity [Unknown]
  - Muscle spasms [Unknown]
  - Depression [Unknown]
  - Weight fluctuation [Unknown]
  - Abdominal pain [Unknown]
  - Night sweats [Unknown]
  - Mobility decreased [Unknown]
  - Respiratory disorder [Unknown]
  - Pyrexia [Unknown]
  - Adverse drug reaction [Unknown]
  - Memory impairment [Unknown]
  - Headache [Unknown]
  - Fatigue [Unknown]
  - Viral infection [Unknown]
  - Rash [Unknown]
  - Pyrexia [Unknown]
